FAERS Safety Report 5276039-3 (Version None)
Quarter: 2007Q1

REPORT INFORMATION
  Report Type: 
  Country: None (occurrence: None)
  Receive Date: 20061213
  Receipt Date: 20060119
  Transmission Date: 20070707
  Serious: Yes (Disabling)
  Sender: FDA-Public Use
  Company Number: 2005UW14037

PATIENT
  Age: 41 Year
  Sex: Male

DRUGS (7)
  1. SEROQUEL [Suspect]
     Dosage: 25 MG QID PO
     Route: 048
     Dates: start: 20001027, end: 20021101
  2. ZYPREXA [Suspect]
     Dosage: 10 MG TID PO
     Route: 048
  3. ZYPREXA [Suspect]
     Dosage: 7.5 MG HS PO
     Route: 048
  4. ZYPREXA [Suspect]
     Dosage: 15 MG HS PO
     Route: 048
     Dates: start: 20011122
  5. LITHIUM CARBONATE [Concomitant]
  6. PROPRANOLOL [Concomitant]
  7. NITROGLYCERIN [Concomitant]

REACTIONS (1)
  - DIABETES MELLITUS [None]
